FAERS Safety Report 20532004 (Version 1)
Quarter: 2022Q1

REPORT INFORMATION
  Report Type: Report from Study
  Country: US (occurrence: US)
  Receive Date: 20220301
  Receipt Date: 20220301
  Transmission Date: 20220423
  Serious: No
  Sender: FDA-Public Use
  Company Number: US-AMRYT PHARMACEUTICALS DAC-AEGR005295

PATIENT
  Age: 12 Year
  Sex: Female
  Weight: 39.909 kg

DRUGS (9)
  1. METRELEPTIN [Suspect]
     Active Substance: METRELEPTIN
     Indication: Congenital generalised lipodystrophy
     Dosage: 2.2 MILLIGRAM, QD
     Route: 058
     Dates: start: 20100323
  2. METRELEPTIN [Suspect]
     Active Substance: METRELEPTIN
     Dosage: 3.5 MILLIGRAM, QD
     Route: 058
     Dates: start: 20140916
  3. METRELEPTIN [Suspect]
     Active Substance: METRELEPTIN
     Dosage: 2.2 MILLIGRAM, QD
     Dates: start: 20141023, end: 20180913
  4. METRELEPTIN [Suspect]
     Active Substance: METRELEPTIN
     Dosage: 3 MILLIGRAM, QD
     Dates: start: 20180813, end: 20190816
  5. METRELEPTIN [Suspect]
     Active Substance: METRELEPTIN
     Dosage: 3.5 MILLIGRAM, QD
     Dates: start: 20190816
  6. METRELEPTIN [Suspect]
     Active Substance: METRELEPTIN
     Dosage: 4.5 MILLIGRAM, QD
     Route: 058
     Dates: start: 20140916
  7. BACTERIOSTATIC WATER [Concomitant]
     Active Substance: WATER
     Indication: Product used for unknown indication
  8. VITAMINS NOS [Concomitant]
     Active Substance: VITAMINS
     Indication: Product used for unknown indication
  9. MIRALAX [Concomitant]
     Active Substance: POLYETHYLENE GLYCOL 3350
     Indication: Product used for unknown indication
     Dosage: 1 DOSAGE FORM, PRN
     Route: 048

REACTIONS (3)
  - Foot fracture [Recovered/Resolved with Sequelae]
  - Vitamin D decreased [Not Recovered/Not Resolved]
  - Weight decreased [Recovered/Resolved]

NARRATIVE: CASE EVENT DATE: 20200724
